FAERS Safety Report 18920078 (Version 1)
Quarter: 2021Q1

REPORT INFORMATION
  Report Type: Spontaneous
  Country: US (occurrence: US)
  Receive Date: 20210222
  Receipt Date: 20210222
  Transmission Date: 20210420
  Serious: Yes (Other)
  Sender: FDA-Public Use
  Company Number: US-TEVA-2021-US-1880784

PATIENT
  Age: 32 Year
  Sex: Female

DRUGS (1)
  1. SPRINTEC [Suspect]
     Active Substance: ETHINYL ESTRADIOL\NORGESTIMATE
     Route: 065
     Dates: start: 202101

REACTIONS (8)
  - Product dispensing error [Unknown]
  - Abdominal distension [Unknown]
  - Vaginal haemorrhage [Unknown]
  - Expired product administered [Unknown]
  - Thrombosis [Unknown]
  - Headache [Unknown]
  - Abdominal pain [Unknown]
  - Menstruation irregular [Unknown]

NARRATIVE: CASE EVENT DATE: 202101
